FAERS Safety Report 13086203 (Version 1)
Quarter: 2017Q1

REPORT INFORMATION
  Report Type: Spontaneous
  Country: US (occurrence: US)
  Receive Date: 20170104
  Receipt Date: 20170104
  Transmission Date: 20170428
  Serious: No
  Sender: FDA-Public Use
  Company Number: US-MISSION PHARMACAL COMPANY-1061533

PATIENT
  Age: 62 Year
  Sex: Male

DRUGS (4)
  1. CEFDINIR. [Concomitant]
     Active Substance: CEFDINIR
  2. AMLODIPINE [Concomitant]
     Active Substance: AMLODIPINE BESYLATE
  3. LISINOPRIL. [Concomitant]
     Active Substance: LISINOPRIL
  4. LITHOSTAT [Suspect]
     Active Substance: ACETOHYDROXAMIC ACID
     Indication: RENAL LITHIASIS PROPHYLAXIS
     Route: 065
     Dates: start: 20161202, end: 20161204

REACTIONS (2)
  - Flatulence [Recovered/Resolved]
  - Abdominal pain upper [Recovered/Resolved]
